FAERS Safety Report 8120041-0 (Version None)
Quarter: 2012Q1

REPORT INFORMATION
  Report Type: 
  Country: None (occurrence: None)
  Receive Date: 20120207
  Receipt Date: 20120203
  Transmission Date: 20120608
  Serious: No
  Sender: FDA-Public Use
  Company Number: US-B.I. PHARMACEUTICALS,INC./RIDGEFIELD-2012-BP-02241BP

PATIENT
  Sex: Male

DRUGS (4)
  1. TRADJENTA [Suspect]
     Indication: TYPE 2 DIABETES MELLITUS
     Dosage: 10 MG
     Route: 048
     Dates: start: 20120103
  2. RANITIDINE [Concomitant]
     Indication: ULCER
  3. INSULIN [Concomitant]
     Indication: TYPE 2 DIABETES MELLITUS
  4. PRANDIN [Concomitant]
     Indication: TYPE 2 DIABETES MELLITUS

REACTIONS (1)
  - INCORRECT DOSE ADMINISTERED [None]
